FAERS Safety Report 4322701-6 (Version None)
Quarter: 2004Q1

REPORT INFORMATION
  Report Type: 
  Country: None (occurrence: None)
  Receive Date: 20040318
  Receipt Date: 20030926
  Transmission Date: 20041129
  Serious: Yes (Hospitalization)
  Sender: FDA-Public Use
  Company Number: MK200309-0482-1

PATIENT
  Age: 40 Year
  Sex: Female

DRUGS (1)
  1. OPTIRAY 320 [Suspect]
     Indication: COMPUTERISED TOMOGRAM
     Dosage: 100CC, IV, ONCE
     Route: 042
     Dates: start: 20030918, end: 20030918

REACTIONS (4)
  - ERYTHEMA [None]
  - FACE OEDEMA [None]
  - PHARYNGEAL OEDEMA [None]
  - PRURITUS [None]
